FAERS Safety Report 22599398 (Version 1)
Quarter: 2023Q2

REPORT INFORMATION
  Report Type: Spontaneous
  Country: FR (occurrence: None)
  Receive Date: 20230614
  Receipt Date: 20230614
  Transmission Date: 20230721
  Serious: Yes (Hospitalization, Other)
  Sender: FDA-Public Use
  Company Number: 2023A136879

PATIENT
  Age: 72 Year
  Sex: Female
  Weight: 60 kg

DRUGS (20)
  1. OMEPRAZOLE [Suspect]
     Active Substance: OMEPRAZOLE
  2. BROMAZEPAM [Suspect]
     Active Substance: BROMAZEPAM
     Indication: Poisoning deliberate
     Dosage: 1 EMPTY BOX OF 30 TABLETS
     Route: 048
     Dates: start: 20230504, end: 20230504
  3. FLUOXETINE HYDROCHLORIDE [Suspect]
     Active Substance: FLUOXETINE HYDROCHLORIDE
     Indication: Poisoning deliberate
     Dates: start: 20230504, end: 20230504
  4. ACETAMINOPHEN [Suspect]
     Active Substance: ACETAMINOPHEN
  5. ASPIRIN [Suspect]
     Active Substance: ASPIRIN
  6. LOPRAZOLAM MESILATE [Suspect]
     Active Substance: LOPRAZOLAM MESILATE
  7. ALCOHOL [Suspect]
     Active Substance: ALCOHOL
  8. DOLIPRANE [Suspect]
     Active Substance: ACETAMINOPHEN
     Indication: Poisoning deliberate
     Dosage: 7 EMPTY BOXES
     Dates: start: 20230504, end: 20230504
  9. ASPIRIN [Suspect]
     Active Substance: ASPIRIN
     Indication: Poisoning deliberate
     Dosage: SEVERAL SACHETS AND ? EMPTY BOX
     Dates: start: 20230504, end: 20230504
  10. LOPRAZOLAM [Suspect]
     Active Substance: LOPRAZOLAM
     Indication: Poisoning deliberate
     Dates: start: 20230504, end: 20230504
  11. ALCOHOL [Suspect]
     Active Substance: ALCOHOL
     Indication: Poisoning deliberate
  12. TERIPARATIDE [Concomitant]
     Active Substance: TERIPARATIDE
     Indication: Osteoporotic fracture
  13. ACETYLCYSTEINE [Concomitant]
     Active Substance: ACETYLCYSTEINE
     Indication: Toxicity to various agents
     Dates: end: 20230507
  14. TRIMEBUTINE MALEATE [Concomitant]
     Active Substance: TRIMEBUTINE MALEATE
  15. SPASFON [Concomitant]
  16. MOVICOL [Concomitant]
     Active Substance: POLYETHYLENE GLYCOL 3350\POTASSIUM CHLORIDE\SODIUM BICARBONATE\SODIUM CHLORIDE
  17. CARTEOL [Concomitant]
  18. NAABAK [Concomitant]
  19. ZELITHREX [Concomitant]
  20. IBUPROFEN [Concomitant]
     Active Substance: IBUPROFEN

REACTIONS (5)
  - Coma [Recovered/Resolved]
  - Hypokalaemia [Unknown]
  - Toxicity to various agents [Unknown]
  - Hypomagnesaemia [Unknown]
  - Hypophosphataemia [Unknown]

NARRATIVE: CASE EVENT DATE: 20230504
